FAERS Safety Report 13640409 (Version 1)
Quarter: 2017Q2

REPORT INFORMATION
  Report Type: Spontaneous
  Country: US (occurrence: US)
  Receive Date: 20170610
  Receipt Date: 20170610
  Transmission Date: 20170830
  Serious: Yes (Other)
  Sender: FDA-Public Use
  Company Number: US-AMGEN-USASP2017086179

PATIENT
  Age: 69 Year
  Sex: Male

DRUGS (36)
  1. BLINCYTO [Suspect]
     Active Substance: BLINATUMOMAB
     Indication: ACUTE LYMPHOCYTIC LEUKAEMIA
     Dosage: UNK
     Route: 065
     Dates: start: 20160805
  2. METHOTREXATE. [Concomitant]
     Active Substance: METHOTREXATE
     Dosage: 20 MG, QWK
     Route: 048
     Dates: end: 2017
  3. ZOVIRAX [Concomitant]
     Active Substance: ACYCLOVIR
     Dosage: 400 MG, UNK
  4. LOPRESSOR [Concomitant]
     Active Substance: METOPROLOL TARTRATE
     Dosage: 25 MG, UNK
  5. DUONEB [Concomitant]
     Active Substance: ALBUTEROL SULFATE\IPRATROPIUM BROMIDE
     Dosage: 0.5MG-3MG (2.5MG BASE) /3ML NEBULIZER SOLUTION
  6. ZYLOPRIM [Concomitant]
     Active Substance: ALLOPURINOL
     Dosage: 300 MG, UNK
  7. VITAMIN D3 [Concomitant]
     Active Substance: CHOLECALCIFEROL
     Dosage: 1000 UNIT, UNK
  8. MORPHINE [Concomitant]
     Active Substance: MORPHINE
     Dosage: 2 MG, UNK
  9. PURINETHOL [Concomitant]
     Active Substance: MERCAPTOPURINE
     Dosage: 50 MG, QD
     Dates: start: 20161006
  10. LOVENOX [Concomitant]
     Active Substance: ENOXAPARIN SODIUM
     Indication: EMBOLISM
  11. DEXTROSE. [Concomitant]
     Active Substance: DEXTROSE
     Dosage: 100 ML
     Route: 042
  12. PEPCID [Concomitant]
     Active Substance: FAMOTIDINE
     Dosage: 20 MG, UNK
  13. FENTANYL. [Concomitant]
     Active Substance: FENTANYL
     Dosage: 100 MUG, UNK
  14. LASIX [Concomitant]
     Active Substance: FUROSEMIDE
     Dosage: 20 MG, UNK
  15. NEUPOGEN [Suspect]
     Active Substance: FILGRASTIM
     Indication: PRODUCT USED FOR UNKNOWN INDICATION
     Dosage: UNK
     Route: 065
  16. SODIUM CHLORIDE. [Concomitant]
     Active Substance: SODIUM CHLORIDE
     Dosage: 100 ML (0.9%)
  17. ELIQUIS [Concomitant]
     Active Substance: APIXABAN
     Dosage: 5 MG, UNK
  18. LIDOCAINE. [Concomitant]
     Active Substance: LIDOCAINE
     Dosage: 5 MG, 1%
     Route: 042
  19. METOPROLOL. [Concomitant]
     Active Substance: METOPROLOL
     Indication: ATRIAL FIBRILLATION
  20. MAXIPIME [Concomitant]
     Active Substance: CEFEPIME HYDROCHLORIDE
     Dosage: 2 G, IN DEXTROSE 100 ML
     Route: 042
  21. ZOFRAN [Concomitant]
     Active Substance: ONDANSETRON HYDROCHLORIDE
     Dosage: 16 MG, IN DEXTROSE 5% 50 ML
     Route: 042
  22. ZOFRAN [Concomitant]
     Active Substance: ONDANSETRON HYDROCHLORIDE
     Dosage: 4 MG, UNK
  23. TYLENOL [Concomitant]
     Active Substance: ACETAMINOPHEN
     Dosage: 650 MG, UNK
  24. ONCASPAR [Concomitant]
     Active Substance: PEGASPARGASE
     Dosage: 3862 UNIT, IN SODIUM CHLORIDE 0.9% 100 ML
  25. BLINCYTO [Suspect]
     Active Substance: BLINATUMOMAB
     Dosage: 28 MUG, UNK
     Route: 065
  26. BLINCYTO [Suspect]
     Active Substance: BLINATUMOMAB
     Dosage: 9 MUG, UNK
     Route: 065
     Dates: start: 20160831
  27. BLINCYTO [Suspect]
     Active Substance: BLINATUMOMAB
     Dosage: 28 MUG, UNK
     Route: 065
     Dates: start: 20160903, end: 2016
  28. ONCOVIN [Concomitant]
     Active Substance: VINCRISTINE SULFATE
     Dosage: 2 MG, IN SODIUM CHLORIDE 0.9% 50 ML
     Dates: start: 20161006
  29. TAMBOCOR [Concomitant]
     Active Substance: FLECAINIDE ACETATE
     Dosage: 75 MG, UNK
  30. FLECAINIDE [Concomitant]
     Active Substance: FLECAINIDE
     Indication: ATRIAL FIBRILLATION
  31. BENADRYL [Concomitant]
     Active Substance: DIPHENHYDRAMINE HYDROCHLORIDE
     Dosage: 50 MG, UNK
  32. METHOTREXATE. [Concomitant]
     Active Substance: METHOTREXATE
     Indication: CHEMOTHERAPY
     Dosage: 206 MG, IN SODIUM CHLORIDE 0.9 % 100 ML
     Dates: start: 20161006
  33. DECADRON [Concomitant]
     Active Substance: DEXAMETHASONE
     Dosage: 12 MG, UNK
  34. MEPRON [Concomitant]
     Active Substance: ATOVAQUONE
     Dosage: 750 MG/5ML, ORAL SUSPENSION 1,500 MG
     Route: 048
  35. PURINETHOL [Concomitant]
     Active Substance: MERCAPTOPURINE
     Dosage: 100 MG, QD
     Dates: start: 20161006
  36. PREDNISONE. [Concomitant]
     Active Substance: PREDNISONE
     Dosage: 100 MG, Q4WK
     Route: 048
     Dates: start: 20161006

REACTIONS (17)
  - Apnoea [Recovered/Resolved]
  - Encephalopathy [Unknown]
  - Acute lymphocytic leukaemia recurrent [Not Recovered/Not Resolved]
  - Pleural effusion [Unknown]
  - Pancytopenia [Unknown]
  - Lung infiltration [Unknown]
  - Systemic inflammatory response syndrome [Unknown]
  - Strabismus [Unknown]
  - Staring [Recovered/Resolved]
  - Troponin increased [Unknown]
  - Fluid overload [Unknown]
  - Brain natriuretic peptide increased [Unknown]
  - Unresponsive to stimuli [Recovered/Resolved]
  - Atrial fibrillation [Unknown]
  - Glucose tolerance impaired [Unknown]
  - Febrile neutropenia [Unknown]
  - Dry skin [Unknown]

NARRATIVE: CASE EVENT DATE: 2016
